FAERS Safety Report 18662048 (Version 4)
Quarter: 2021Q2

REPORT INFORMATION
  Report Type: Report from Study
  Country: DK (occurrence: DK)
  Receive Date: 20201224
  Receipt Date: 20210401
  Transmission Date: 20210717
  Serious: Yes (Hospitalization)
  Sender: FDA-Public Use
  Company Number: DK-NOVOPROD-775362

PATIENT
  Age: 79 Year
  Sex: Male
  Weight: 89 kg

DRUGS (5)
  1. PRADAXA [Concomitant]
     Active Substance: DABIGATRAN ETEXILATE MESYLATE
  2. SEMAGLUTIDE 3 MG [Suspect]
     Active Substance: SEMAGLUTIDE
     Dosage: UNK
     Route: 048
     Dates: start: 20200610, end: 20200924
  3. SEMAGLUTIDE 3 MG [Suspect]
     Active Substance: SEMAGLUTIDE
     Dosage: UNK
     Route: 048
     Dates: start: 20201204, end: 20201216
  4. SEMAGLUTIDE 3 MG [Suspect]
     Active Substance: SEMAGLUTIDE
     Indication: TYPE 2 DIABETES MELLITUS
     Dosage: 3.0,MG,ONCE PER DAY
     Route: 048
     Dates: start: 20200610, end: 20201216
  5. ACETYLSALICYLIC ACID [Concomitant]
     Active Substance: ASPIRIN
     Dates: start: 20210121, end: 20210121

REACTIONS (3)
  - Pleural effusion [Not Recovered/Not Resolved]
  - Cholecystitis [Not Recovered/Not Resolved]
  - Cholelithiasis [Not Recovered/Not Resolved]

NARRATIVE: CASE EVENT DATE: 20201217
